FAERS Safety Report 20800917 (Version 4)
Quarter: 2023Q2

REPORT INFORMATION
  Report Type: Spontaneous
  Country: CH (occurrence: CH)
  Receive Date: 20220509
  Receipt Date: 20230510
  Transmission Date: 20230721
  Serious: Yes (Congenital Anomaly, Other)
  Sender: FDA-Public Use
  Company Number: SZ-CIPLA LTD.-2022SZ02889

PATIENT

DRUGS (4)
  1. LAMIVUDINE [Suspect]
     Active Substance: LAMIVUDINE
     Dosage: UNK
     Route: 064
  2. TENOFOVIR [Suspect]
     Active Substance: TENOFOVIR
     Dosage: UNK
     Route: 064
  3. LOPINAVIR\RITONAVIR [Suspect]
     Active Substance: LOPINAVIR\RITONAVIR
     Dosage: UNK
     Route: 064
  4. RETROVIR [Suspect]
     Active Substance: ZIDOVUDINE
     Dosage: 2 MILLIGRAM/KILOGRAM, PER HOUR
     Route: 064

REACTIONS (9)
  - Meningomyelocele [Unknown]
  - Arnold-Chiari malformation [Unknown]
  - Macrocephaly [Not Recovered/Not Resolved]
  - Premature baby [Unknown]
  - Neonatal respiratory distress syndrome [Unknown]
  - Hyperbilirubinaemia [Unknown]
  - Hydrocephalus [Unknown]
  - Necrotising enterocolitis neonatal [Recovered/Resolved]
  - Foetal exposure during pregnancy [Unknown]
